FAERS Safety Report 4709937-7 (Version None)
Quarter: 2005Q3

REPORT INFORMATION
  Report Type: 
  Country: None (occurrence: None)
  Receive Date: 20050708
  Receipt Date: 20050630
  Transmission Date: 20060218
  Serious: Yes (Hospitalization)
  Sender: FDA-Public Use
  Company Number: CA-BRISTOL-MYERS SQUIBB COMPANY-13021050

PATIENT
  Age: 60 Year
  Sex: Female

DRUGS (10)
  1. CISPLATIN [Suspect]
     Indication: NON-HODGKIN'S LYMPHOMA
     Route: 042
     Dates: start: 20050621, end: 20050622
  2. CYTARABINE [Suspect]
     Indication: NON-HODGKIN'S LYMPHOMA
     Route: 042
     Dates: start: 20050622, end: 20050623
  3. DEXAMETHASONE [Suspect]
     Indication: NON-HODGKIN'S LYMPHOMA
     Route: 048
     Dates: start: 20050621, end: 20050624
  4. DEXAMETHASONE [Suspect]
     Route: 042
     Dates: start: 20050621, end: 20050624
  5. DEXAMETHASONE [Suspect]
     Route: 042
     Dates: start: 20050621, end: 20050624
  6. DURAGESIC-100 [Concomitant]
     Indication: ARTHRALGIA
     Dates: start: 20050510
  7. LASIX [Concomitant]
     Indication: HYPERTENSION
     Dates: start: 20050303
  8. EFFEXOR [Concomitant]
     Indication: DEPRESSION
     Dates: start: 20050503
  9. PANTOPRAZOLE SODIUM [Concomitant]
     Indication: ABDOMINAL PAIN
     Dates: start: 20040101
  10. ATENOLOL [Concomitant]
     Indication: HYPERTENSION
     Dates: start: 20040101

REACTIONS (6)
  - BLOOD CREATININE INCREASED [None]
  - COUGH [None]
  - DYSPNOEA [None]
  - FATIGUE [None]
  - NEUTROPENIA [None]
  - URINE OUTPUT DECREASED [None]
